FAERS Safety Report 24359344 (Version 1)
Quarter: 2024Q3

REPORT INFORMATION
  Report Type: Report from Study
  Country: CN (occurrence: CN)
  Receive Date: 20240924
  Receipt Date: 20240924
  Transmission Date: 20241017
  Serious: No
  Sender: Unknown Manufacturer
  Company Number: CN-CSTONE PHARMACEUTICALS (SUZHOU) CO., LTD.-2024CN01072

PATIENT

DRUGS (3)
  1. PRALSETINIB [Suspect]
     Active Substance: PRALSETINIB
     Indication: Non-small cell lung cancer
     Dosage: UNK
     Route: 048
     Dates: start: 202310, end: 202401
  2. PRALSETINIB [Suspect]
     Active Substance: PRALSETINIB
     Dosage: CHANGED THE DOSAGE DURING PERIOD
     Route: 048
     Dates: start: 20240523
  3. PRALSETINIB [Suspect]
     Active Substance: PRALSETINIB
     Dosage: 300 MILLIGRAM, QD
     Route: 048

REACTIONS (8)
  - Onychalgia [Recovering/Resolving]
  - Pallor [Recovering/Resolving]
  - Nasal pruritus [Recovering/Resolving]
  - Hair texture abnormal [Recovering/Resolving]
  - Hair colour changes [Recovering/Resolving]
  - Gastrointestinal motility disorder [Unknown]
  - Tumour excision [Unknown]
  - Asthenia [Recovering/Resolving]

NARRATIVE: CASE EVENT DATE: 20240131
